FAERS Safety Report 23192305 (Version 2)
Quarter: 2023Q4

REPORT INFORMATION
  Report Type: Spontaneous
  Country: ZA (occurrence: ZA)
  Receive Date: 20231116
  Receipt Date: 20231122
  Transmission Date: 20240110
  Serious: Yes (Other)
  Sender: FDA-Public Use
  Company Number: ZA-AMERICAN REGENT INC-2023002635

PATIENT
  Age: 47 Year
  Sex: Female

DRUGS (6)
  1. FERINJECT [Suspect]
     Active Substance: FERRIC CARBOXYMALTOSE
     Indication: Iron deficiency anaemia
     Dosage: FIRST INFUSION (500 MG)
     Dates: start: 20230317, end: 20230317
  2. FERINJECT [Suspect]
     Active Substance: FERRIC CARBOXYMALTOSE
     Dosage: SECOND INFUSION (500 MG)
     Dates: start: 20230324, end: 20230324
  3. FERINJECT [Suspect]
     Active Substance: FERRIC CARBOXYMALTOSE
     Dosage: THIRD INFUSION (500 MG)
     Dates: start: 20230411, end: 20230411
  4. FERINJECT [Suspect]
     Active Substance: FERRIC CARBOXYMALTOSE
     Dosage: 500 MILLIGRAM
     Dates: start: 20230825, end: 20230825
  5. FERINJECT [Suspect]
     Active Substance: FERRIC CARBOXYMALTOSE
     Dosage: 4 VIALS OF 500 MG (2000 MG) SCHEDULED TO ON 09-OCT-2023, 16-OCT-2023, 23-OCT-2023, AND 30-OCT-2023 (
     Dates: start: 202310
  6. ASCORBIC ACID\FERRIC PYROPHOSPHATE [Concomitant]
     Active Substance: ASCORBIC ACID\FERRIC PYROPHOSPHATE
     Indication: Product used for unknown indication
     Dosage: ONGOING (2 IN 1 D)
     Route: 065

REACTIONS (8)
  - Serum ferritin increased [Recovering/Resolving]
  - Hyperphosphataemia [Unknown]
  - Toxicity to various agents [Unknown]
  - Influenza like illness [Unknown]
  - Illness [Unknown]
  - Palpitations [Not Recovered/Not Resolved]
  - Headache [Unknown]
  - Prescribed overdose [Unknown]

NARRATIVE: CASE EVENT DATE: 20230317
